FAERS Safety Report 12416788 (Version 1)
Quarter: 2016Q2

REPORT INFORMATION
  Report Type: Spontaneous
  Country: US (occurrence: US)
  Receive Date: 20160530
  Receipt Date: 20160530
  Transmission Date: 20160815
  Serious: Yes (Other)
  Sender: FDA-Public Use
  Company Number: US-PFIZER INC-2016276555

PATIENT
  Age: 16 Year
  Sex: Female
  Weight: 61.23 kg

DRUGS (2)
  1. LEXAPRO [Suspect]
     Active Substance: ESCITALOPRAM OXALATE
  2. XANAX [Suspect]
     Active Substance: ALPRAZOLAM

REACTIONS (4)
  - Suicidal behaviour [Unknown]
  - Serotonin syndrome [Unknown]
  - Gene mutation [Unknown]
  - Product use issue [Unknown]
